FAERS Safety Report 14216009 (Version 1)
Quarter: 2017Q4

REPORT INFORMATION
  Report Type: Spontaneous
  Country: SK (occurrence: SK)
  Receive Date: 20171122
  Receipt Date: 20171122
  Transmission Date: 20180321
  Serious: Yes (Other)
  Sender: FDA-Public Use
  Company Number: SK-SHIRE-SK201729984

PATIENT

DRUGS (1)
  1. KIOVIG [Suspect]
     Active Substance: HUMAN IMMUNOGLOBULIN G
     Indication: HYPOGAMMAGLOBULINAEMIA
     Dosage: 1X1 MG/100 ML
     Route: 042
     Dates: start: 20171026

REACTIONS (3)
  - Interstitial lung disease [Unknown]
  - Bronchitis chronic [Unknown]
  - Myalgia [Unknown]
